FAERS Safety Report 8269596 (Version 12)
Quarter: 2013Q1

REPORT INFORMATION
  Report Type: Report from Study
  Country: US (occurrence: US)
  Receive Date: 20111130
  Receipt Date: 20130327
  Transmission Date: 20140127
  Serious: Yes (Hospitalization)
  Sender: FDA-Public Use
  Company Number: PHHO2011US16906

PATIENT
  Age: 68 Year
  Sex: Male
  Weight: 102.5 kg

DRUGS (4)
  1. CERTICAN [Suspect]
     Indication: RENAL TRANSPLANT
     Dosage: 0.5 DF, Q12H
     Dates: start: 20110729, end: 20111019
  2. CERTICAN [Suspect]
     Dosage: 0.25 DF, Q12H
     Dates: start: 20111020, end: 20111021
  3. CERTICAN [Suspect]
     Dosage: 0.5 DF, Q12H
     Dates: start: 20111022, end: 20111216
  4. TACROLIMUS [Suspect]
     Indication: RENAL TRANSPLANT
     Dosage: UNK

REACTIONS (2)
  - Febrile neutropenia [Recovered/Resolved]
  - Pneumonia bacterial [Recovered/Resolved]
